FAERS Safety Report 10037523 (Version 1)
Quarter: 2014Q1

REPORT INFORMATION
  Report Type: Spontaneous
  Country: US (occurrence: None)
  Receive Date: 20140324
  Receipt Date: 20140324
  Transmission Date: 20141002
  Serious: Yes (Life-Threatening, Other)
  Sender: FDA-Public Use
  Company Number: 001693486A

PATIENT
  Sex: Female

DRUGS (2)
  1. MEANINGFUL BEAUTY ANTIOXIDANT DAY CREME SPF 20 [Suspect]
     Dosage: TWICE DAILY DERMAL
     Dates: start: 20140105, end: 20140108
  2. SPF 15 ALL DAY MOISTURIZER WITH AHAS [Suspect]
     Dosage: TWICE DAILY DERMAL
     Dates: start: 20140105, end: 20140108

REACTIONS (2)
  - Swelling face [None]
  - Eye swelling [None]
